FAERS Safety Report 4446919-7 (Version None)
Quarter: 2004Q3

REPORT INFORMATION
  Report Type: 
  Country: None (occurrence: None)
  Receive Date: 20040908
  Receipt Date: 20040823
  Transmission Date: 20050211
  Serious: Yes (Other)
  Sender: FDA-Public Use
  Company Number: 2004-0007408

PATIENT
  Sex: Male

DRUGS (3)
  1. VIREAD [Suspect]
     Indication: HIV INFECTION
     Dosage: 300 MG, ORAL
     Route: 048
  2. 3TC (LAMIVUDINE) [Suspect]
     Indication: HIV INFECTION
  3. EFAVIRENZ (EFAVIRENZ) [Suspect]
     Indication: HIV INFECTION

REACTIONS (1)
  - RHABDOMYOLYSIS [None]
